FAERS Safety Report 21290145 (Version 1)
Quarter: 2022Q3

REPORT INFORMATION
  Report Type: Report from Study
  Country: DE (occurrence: DE)
  Receive Date: 20220902
  Receipt Date: 20220902
  Transmission Date: 20221026
  Serious: Yes (Death, Other)
  Sender: FDA-Public Use
  Company Number: DE-GLAXOSMITHKLINE-DECH2022GSK031504

PATIENT

DRUGS (1)
  1. IBUPROFEN [Suspect]
     Active Substance: IBUPROFEN
     Indication: Migraine
     Dosage: 400-800 MG/D
     Route: 064

REACTIONS (4)
  - Abortion spontaneous [Fatal]
  - Amniotic cavity infection [Unknown]
  - Premature separation of placenta [Unknown]
  - Foetal exposure during pregnancy [Unknown]
